FAERS Safety Report 8016284-7 (Version None)
Quarter: 2011Q4

REPORT INFORMATION
  Report Type: 
  Country: None (occurrence: None)
  Receive Date: 20111228
  Receipt Date: 20111228
  Transmission Date: 20120403
  Serious: Yes (Other)
  Sender: FDA-Public Use
  Company Number: None

PATIENT
  Sex: Male

DRUGS (2)
  1. SINEMET [Suspect]
     Indication: PARKINSON'S DISEASE
     Dosage: SINEMET PO
  2. AZILECT [Suspect]
     Indication: PARKINSON'S DISEASE
     Dosage: AZILECT PO
     Route: 048
     Dates: start: 20080101

REACTIONS (1)
  - BASAL CELL CARCINOMA [None]
